FAERS Safety Report 7897197-8 (Version None)
Quarter: 2011Q4

REPORT INFORMATION
  Report Type: 
  Country: None (occurrence: None)
  Receive Date: 20111107
  Receipt Date: 20110208
  Transmission Date: 20120403
  Serious: Yes (Other)
  Sender: FDA-Public Use
  Company Number: US-BAYER-2011-013024

PATIENT
  Age: 68 Year
  Sex: Female

DRUGS (1)
  1. NEXAVAR [Suspect]
     Indication: THYROID CANCER
     Dosage: 400 MG, BID
     Route: 048
     Dates: start: 20110128

REACTIONS (11)
  - ORAL PAIN [None]
  - BLOOD GLUCOSE INCREASED [None]
  - VOMITING [None]
  - PALMAR-PLANTAR ERYTHRODYSAESTHESIA SYNDROME [None]
  - NAUSEA [None]
  - BLOOD PRESSURE INCREASED [None]
  - FLUSHING [None]
  - RASH PRURITIC [None]
  - FATIGUE [None]
  - PAIN IN EXTREMITY [None]
  - RASH [None]
